FAERS Safety Report 6935977-3 (Version None)
Quarter: 2010Q3

REPORT INFORMATION
  Report Type: 
  Country: None (occurrence: None)
  Receive Date: 20100823
  Receipt Date: 20100819
  Transmission Date: 20110219
  Serious: Yes (Other)
  Sender: FDA-Public Use
  Company Number: US-BRISTOL-MYERS SQUIBB COMPANY-15211279

PATIENT
  Age: 56 Year
  Sex: Female

DRUGS (5)
  1. ORENCIA [Suspect]
     Route: 042
     Dates: start: 20080201
  2. PLAQUENIL [Concomitant]
  3. SINGULAIR [Concomitant]
  4. FOSAMAX [Concomitant]
  5. BUMETANIDE [Concomitant]

REACTIONS (1)
  - MIGRAINE [None]
